FAERS Safety Report 6443919-2 (Version None)
Quarter: 2009Q4

REPORT INFORMATION
  Report Type: 
  Country: None (occurrence: None)
  Receive Date: 20091113
  Receipt Date: 20091104
  Transmission Date: 20100525
  Serious: Yes (Other)
  Sender: FDA-Public Use
  Company Number: 426179

PATIENT
  Age: 6 Year
  Sex: Male

DRUGS (4)
  1. METHOTREXATE [Suspect]
     Indication: ACUTE LYMPHOCYTIC LEUKAEMIA
     Dosage: INTRATHECAL
     Route: 037
  2. VINCRISTINE [Suspect]
     Indication: ACUTE LYMPHOCYTIC LEUKAEMIA
     Dosage: INTRAVENOUS
     Route: 042
  3. CYTARABINE [Concomitant]
  4. (CORTICOSTEROID NOS) [Concomitant]

REACTIONS (2)
  - NEUROTOXICITY [None]
  - REVERSIBLE POSTERIOR LEUKOENCEPHALOPATHY SYNDROME [None]
